FAERS Safety Report 8617139-7 (Version None)
Quarter: 2012Q3

REPORT INFORMATION
  Report Type: 
  Country: None (occurrence: None)
  Receive Date: 20120823
  Receipt Date: 20120817
  Transmission Date: 20120928
  Serious: No
  Sender: FDA-Public Use
  Company Number: US-PFIZER INC-2012203085

PATIENT
  Sex: Male

DRUGS (1)
  1. CELEBREX [Suspect]

REACTIONS (1)
  - HYPERGLYCAEMIA [None]
